FAERS Safety Report 10392761 (Version 4)
Quarter: 2014Q4

REPORT INFORMATION
  Report Type: Spontaneous
  Country: US (occurrence: None)
  Receive Date: 20140815
  Receipt Date: 20141231
  Transmission Date: 20150528
  Serious: Yes (Hospitalization, Other)
  Sender: FDA-Public Use
  Company Number: ADR-2014-01431

PATIENT
  Age: 28 Year
  Sex: Female

DRUGS (2)
  1. GABLOFEN [Suspect]
     Active Substance: BACLOFEN
  2. LIORESAL [Suspect]
     Active Substance: BACLOFEN
     Indication: MUSCLE SPASTICITY
     Dosage: 150.11 MCG/DAY

REACTIONS (17)
  - Vomiting [None]
  - Arthralgia [None]
  - Frustration [None]
  - Back pain [None]
  - Cerebrospinal fluid leakage [None]
  - Headache [None]
  - Implant site discharge [None]
  - Post procedural complication [None]
  - Pain in extremity [None]
  - Incision site swelling [None]
  - Post lumbar puncture syndrome [None]
  - Implant site extravasation [None]
  - Hypoaesthesia [None]
  - Neck pain [None]
  - Nausea [None]
  - Musculoskeletal discomfort [None]
  - Procedural headache [None]

NARRATIVE: CASE EVENT DATE: 20140731
